FAERS Safety Report 13346135 (Version 2)
Quarter: 2017Q2

REPORT INFORMATION
  Report Type: Report from Study
  Country: None (occurrence: CA)
  Receive Date: 20170317
  Receipt Date: 20170417
  Transmission Date: 20170830
  Serious: Yes (Other)
  Sender: FDA-Public Use
  Company Number: CA-ABBVIE-17K-028-1907906-00

PATIENT
  Sex: Male
  Weight: 100.6 kg

DRUGS (1)
  1. HUMIRA [Suspect]
     Active Substance: ADALIMUMAB
     Indication: CROHN^S DISEASE
     Route: 058
     Dates: start: 201302

REACTIONS (2)
  - Diarrhoea [Recovering/Resolving]
  - Macular degeneration [Not Recovered/Not Resolved]
